FAERS Safety Report 4999468-1 (Version None)
Quarter: 2006Q2

REPORT INFORMATION
  Report Type: 
  Country: None (occurrence: None)
  Receive Date: 20060510
  Receipt Date: 20060510
  Transmission Date: 20061013
  Serious: Yes (Life-Threatening, Hospitalization)
  Sender: FDA-Public Use
  Company Number: None

PATIENT
  Age: 52 Year
  Sex: Female
  Weight: 167 kg

DRUGS (10)
  1. VALSARTAN [Suspect]
     Indication: HYPERTENSION
     Dosage: 160 MG  PO  QD
     Route: 048
     Dates: start: 20051101, end: 20060201
  2. LISINOPRIL [Suspect]
     Indication: HYPERTENSION
     Dosage: 40 MG  PO  QD
     Route: 048
     Dates: start: 20051101, end: 20060201
  3. ASPIRIN [Concomitant]
  4. FERROUS SULFATE TAB [Concomitant]
  5. FUROSEMIDE [Concomitant]
  6. GLIPIZIDE [Concomitant]
  7. LANTUS [Concomitant]
  8. METFORMIN [Concomitant]
  9. MICONAZOLE [Concomitant]
  10. PROPOXYPHENE HYDROCHLORIDE [Concomitant]

REACTIONS (6)
  - BLOOD POTASSIUM INCREASED [None]
  - DECREASED APPETITE [None]
  - DIFFICULTY IN WALKING [None]
  - HAEMODIALYSIS [None]
  - PAIN IN EXTREMITY [None]
  - VOMITING [None]
